FAERS Safety Report 26069381 (Version 1)
Quarter: 2025Q4

REPORT INFORMATION
  Report Type: Spontaneous
  Country: US (occurrence: US)
  Receive Date: 20251120
  Receipt Date: 20251120
  Transmission Date: 20260118
  Serious: No
  Sender: AMNEAL
  Company Number: US-AMNEAL PHARMACEUTICALS-2025-AMRX-03571

PATIENT
  Sex: Male

DRUGS (1)
  1. CREXONT [Suspect]
     Active Substance: CARBIDOPA\LEVODOPA
     Indication: Parkinson^s disease
     Dosage: 1 CAPSULES (52.5/210 MG), 3 /DAY
     Route: 048

REACTIONS (4)
  - Symptom recurrence [Unknown]
  - Malaise [Unknown]
  - Dizziness [Unknown]
  - Therapeutic response decreased [Unknown]
